FAERS Safety Report 8228236-2 (Version None)
Quarter: 2012Q1

REPORT INFORMATION
  Report Type: 
  Country: None (occurrence: None)
  Receive Date: 20120322
  Receipt Date: 20111114
  Transmission Date: 20120608
  Serious: No
  Sender: FDA-Public Use
  Company Number: US-BRISTOL-MYERS SQUIBB COMPANY-16229700

PATIENT

DRUGS (2)
  1. IRINOTECAN HCL [Suspect]
     Indication: COLORECTAL CANCER
     Dosage: COMBINATION THERAPY
  2. ERBITUX [Suspect]
     Indication: COLORECTAL CANCER
     Dosage: COMBINATION THERAPY

REACTIONS (1)
  - TOXICITY TO VARIOUS AGENTS [None]
